FAERS Safety Report 23072648 (Version 1)
Quarter: 2023Q4

REPORT INFORMATION
  Report Type: Spontaneous
  Country: US (occurrence: US)
  Receive Date: 20231017
  Receipt Date: 20231017
  Transmission Date: 20240109
  Serious: Yes (Life-Threatening, Hospitalization, Other)
  Sender: FDA-Public Use
  Company Number: US-drreddys-LIT/USA/23/0179794

PATIENT
  Age: 22 Year
  Sex: Female

DRUGS (1)
  1. IBUPROFEN [Suspect]
     Active Substance: IBUPROFEN
     Indication: Product used for unknown indication
     Dosage: 1 TOTAL
     Route: 048

REACTIONS (9)
  - Toxicity to various agents [Recovered/Resolved]
  - Distributive shock [Recovered/Resolved]
  - Depressed level of consciousness [Recovered/Resolved]
  - Electrolyte imbalance [Recovered/Resolved]
  - Metabolic acidosis [Recovered/Resolved]
  - Unresponsive to stimuli [Recovered/Resolved]
  - Acute kidney injury [Recovered/Resolved]
  - Intentional overdose [Recovered/Resolved]
  - Intentional product misuse [Unknown]
